FAERS Safety Report 20703150 (Version 1)
Quarter: 2022Q2

REPORT INFORMATION
  Report Type: Spontaneous
  Country: US (occurrence: US)
  Receive Date: 20220413
  Receipt Date: 20220413
  Transmission Date: 20220721
  Serious: Yes (Other)
  Sender: FDA-Public Use
  Company Number: US-AMGEN-USASP2022059742

PATIENT

DRUGS (2)
  1. BLINATUMOMAB [Suspect]
     Active Substance: BLINATUMOMAB
     Indication: Acute lymphocytic leukaemia recurrent
     Dosage: UNK
     Route: 065
  2. INOTUZUMAB OZOGAMICIN [Concomitant]
     Active Substance: INOTUZUMAB OZOGAMICIN

REACTIONS (14)
  - Achromobacter infection [Unknown]
  - Central nervous system infection [Unknown]
  - Systemic viral infection [Unknown]
  - Clostridium difficile colitis [Unknown]
  - Bacteraemia [Unknown]
  - Sepsis [Unknown]
  - Neutropenia [Unknown]
  - Blood immunoglobulin G decreased [Unknown]
  - Lymphopenia [Unknown]
  - Respiratory tract infection viral [Unknown]
  - Soft tissue infection [Unknown]
  - Sinusitis [Unknown]
  - Gastrointestinal infection [Unknown]
  - Staphylococcal infection [Unknown]
